FAERS Safety Report 22389262 (Version 3)
Quarter: 2023Q2

REPORT INFORMATION
  Report Type: Spontaneous
  Country: ES (occurrence: ES)
  Receive Date: 20230531
  Receipt Date: 20230628
  Transmission Date: 20230722
  Serious: Yes (Hospitalization, Other)
  Sender: FDA-Public Use
  Company Number: ES-MLMSERVICE-20230510-4280009-1

PATIENT

DRUGS (2)
  1. ATORVASTATIN [Suspect]
     Active Substance: ATORVASTATIN
     Indication: Product used for unknown indication
     Route: 065
  2. LEVOFLOXACIN [Suspect]
     Active Substance: LEVOFLOXACIN
     Indication: Urinary tract infection
     Route: 065

REACTIONS (7)
  - Hepatotoxicity [Recovered/Resolved]
  - Normocytic anaemia [Unknown]
  - Abdominal distension [Unknown]
  - Drug interaction [Recovered/Resolved]
  - Rhabdomyolysis [Recovered/Resolved]
  - Malaise [Unknown]
  - Myalgia [Unknown]
